FAERS Safety Report 8474426-3 (Version None)
Quarter: 2012Q2

REPORT INFORMATION
  Report Type: 
  Country: None (occurrence: None)
  Receive Date: 20120628
  Receipt Date: 20120621
  Transmission Date: 20120825
  Serious: Yes (Other)
  Sender: FDA-Public Use
  Company Number: PHHY2012CA052605

PATIENT
  Sex: Female

DRUGS (2)
  1. EXTAVIA [Suspect]
     Indication: RELAPSING-REMITTING MULTIPLE SCLEROSIS
     Dosage: 8 MIU, QOD
     Route: 058
     Dates: start: 20120514
  2. BETASERON [Suspect]
     Indication: RELAPSING-REMITTING MULTIPLE SCLEROSIS
     Dosage: 8 MIU, QOD
     Route: 058
     Dates: end: 20120501

REACTIONS (7)
  - FALL [None]
  - FOOT FRACTURE [None]
  - MEMORY IMPAIRMENT [None]
  - ARTHRITIS [None]
  - CONTUSION [None]
  - ARTHRALGIA [None]
  - GAIT DISTURBANCE [None]
